FAERS Safety Report 11723839 (Version 5)
Quarter: 2016Q3

REPORT INFORMATION
  Report Type: Report from Study
  Country: US (occurrence: US)
  Receive Date: 20151111
  Receipt Date: 20160920
  Transmission Date: 20161109
  Serious: Yes (Hospitalization, Other)
  Sender: FDA-Public Use
  Company Number: US-VERTEX PHARMACEUTICALS-2015-005002

PATIENT
  Age: 12 Year
  Sex: Female
  Weight: 54 kg

DRUGS (22)
  1. MULTIVITAMIN [Concomitant]
     Active Substance: VITAMINS
  2. KEPPRA [Concomitant]
     Active Substance: LEVETIRACETAM
     Dosage: 500MG AM AND 750 MG QD
  3. VITAMIN D3 [Concomitant]
     Active Substance: CHOLECALCIFEROL
     Dosage: TAKE 10 CAPS
     Route: 048
  4. ORKAMBI [Suspect]
     Active Substance: IVACAFTOR\LUMACAFTOR
     Indication: CYSTIC FIBROSIS
     Dosage: 2 DF, BID
     Route: 048
     Dates: start: 20151014, end: 20151101
  5. CREON [Concomitant]
     Active Substance: PANCRELIPASE AMYLASE\PANCRELIPASE LIPASE\PANCRELIPASE PROTEASE
     Dosage: 6 WITH MEALS, 3 WITH SNACKS
  6. PREDNISONE. [Concomitant]
     Active Substance: PREDNISONE
     Dosage: 15 MG, QD STEPPING DOWN TO 15-10 AT THE END OF WEEK
  7. DULERA [Concomitant]
     Active Substance: FORMOTEROL FUMARATE DIHYDRATE\MOMETASONE FUROATE
     Dosage: UNK, PRN
  8. EMLA [Concomitant]
     Active Substance: LIDOCAINE\PRILOCAINE
     Dosage: 30 G TUBE
     Route: 061
  9. HYPERTONIC SALINE SOLUTION [Concomitant]
     Active Substance: SODIUM CHLORIDE
     Dosage: UNK, BID
  10. CLARITIN [Concomitant]
     Active Substance: LORATADINE
     Dosage: 10 MG, QD
  11. MIDAZOLAM [Concomitant]
     Active Substance: MIDAZOLAM\MIDAZOLAM HYDROCHLORIDE
     Dosage: 1 ML AS INSTRUCTED
     Route: 045
  12. PREDNISONE. [Concomitant]
     Active Substance: PREDNISONE
     Dosage: ALTERNATE 15MG WITH 20MG, QOD
  13. ALENDRONATE [Concomitant]
     Active Substance: ALENDRONATE SODIUM
     Dosage: 1 DF, QD
  14. DUONEB [Concomitant]
     Active Substance: ALBUTEROL SULFATE\IPRATROPIUM BROMIDE
     Dosage: UNK, PRN
  15. VITAMIN D [Concomitant]
     Active Substance: CHOLECALCIFEROL
  16. PULMOZYME [Concomitant]
     Active Substance: DORNASE ALFA
     Dosage: 2.5 MG, QD
  17. NOVOLOG [Concomitant]
     Active Substance: INSULIN ASPART
     Dosage: 150-200 0.5U DAY + 0.5 U PER ADDITIONAL 50, 1:15 G CARB
  18. ALBUTEROL. [Concomitant]
     Active Substance: ALBUTEROL
     Dosage: UNK, QD
  19. FOSAMAX [Concomitant]
     Active Substance: ALENDRONATE SODIUM
  20. ADEK [Concomitant]
  21. MVI [Concomitant]
     Active Substance: VITAMINS
  22. SOLU-CORTEF [Concomitant]
     Active Substance: HYDROCORTISONE SODIUM SUCCINATE
     Dosage: 2 ML AS NEEDED FOR EMERGENCY
     Route: 030

REACTIONS (10)
  - Liver disorder [Unknown]
  - Pain in extremity [Recovered/Resolved]
  - Rash [Recovered/Resolved]
  - Diarrhoea [Unknown]
  - Myalgia [Unknown]
  - Pyrexia [Recovered/Resolved]
  - Dizziness [Recovered/Resolved]
  - Infective pulmonary exacerbation of cystic fibrosis [Unknown]
  - Pain [Unknown]
  - Nausea [Recovered/Resolved]

NARRATIVE: CASE EVENT DATE: 20151016
